FAERS Safety Report 21366206 (Version 1)
Quarter: 2022Q3

REPORT INFORMATION
  Report Type: Report from Study
  Country: CN (occurrence: CN)
  Receive Date: 20220922
  Receipt Date: 20220922
  Transmission Date: 20221027
  Serious: Yes (Hospitalization, Other)
  Sender: FDA-Public Use
  Company Number: CN-BRISTOL-MYERS SQUIBB COMPANY-BMS-2021-028459

PATIENT
  Age: 61 Year
  Sex: Male
  Weight: 53.2 kg

DRUGS (3)
  1. PLACEBO [Suspect]
     Active Substance: UNSPECIFIED INGREDIENT
     Indication: Gastric cancer
     Route: 042
     Dates: start: 20200813
  2. OXALIPLATIN [Suspect]
     Active Substance: OXALIPLATIN
     Indication: Gastric cancer
     Dosage: ON 06-JAN-2021, C4D1, THE PATIENT RECEIVED THE LAST DOSE OF OXALIPLATIN.
     Route: 042
     Dates: start: 20200813
  3. CAPECITABINE [Suspect]
     Active Substance: CAPECITABINE
     Indication: Gastric cancer
     Dosage: ON 25-JAN-2021, THE PATIENT RECEIVED THE LAST DOSE OF CAPECITABINE.
     Route: 048
     Dates: start: 20200813

REACTIONS (1)
  - Intestinal obstruction [Recovered/Resolved]

NARRATIVE: CASE EVENT DATE: 20210226
